FAERS Safety Report 9476163 (Version 1)
Quarter: 2013Q3

REPORT INFORMATION
  Report Type: Report from Study
  Country: DE (occurrence: DE)
  Receive Date: 20130826
  Receipt Date: 20130826
  Transmission Date: 20140515
  Serious: Yes (Other)
  Sender: FDA-Public Use
  Company Number: DE-009507513-1308DEU011106

PATIENT
  Age: 46 Year
  Sex: Male

DRUGS (3)
  1. BOCEPREVIR [Suspect]
     Indication: CHRONIC HEPATITIS C
     Dosage: LAST DOSE PRIOR TO SAE: 10-FEB-2012 (200 MG, 12 IN 1 D)
     Route: 048
     Dates: start: 20111130
  2. RIBAVIRIN [Suspect]
     Indication: CHRONIC HEPATITIS C
     Dosage: 400 MG, TID
     Route: 048
     Dates: start: 20111130
  3. PEGINTERFERON ALFA-2A [Suspect]
     Indication: CHRONIC HEPATITIS C
     Dosage: DAILY DOSE: LAST DOSE PRIOR TO SAE: 10-FEB-2012
     Route: 058
     Dates: start: 20111130

REACTIONS (1)
  - Hypertension [Not Recovered/Not Resolved]
